FAERS Safety Report 6105717-9 (Version None)
Quarter: 2009Q1

REPORT INFORMATION
  Report Type: 
  Country: None (occurrence: None)
  Receive Date: 20090304
  Receipt Date: 20090304
  Transmission Date: 20090719
  Serious: Yes (Hospitalization)
  Sender: FDA-Public Use
  Company Number: None

PATIENT
  Sex: Male
  Weight: 80 kg

DRUGS (11)
  1. TEMOZOLOMIDE [Suspect]
     Indication: GLIOBLASTOMA MULTIFORME
     Dosage: 200MG/M2 DAYS 1-5
     Dates: start: 20080711, end: 20080715
  2. IRINOTECAN HCL [Suspect]
     Indication: GLIOBLASTOMA MULTIFORME
     Dosage: 125 MG/M2
     Dates: start: 20080711
  3. IRINOTECAN HCL [Suspect]
     Indication: GLIOBLASTOMA MULTIFORME
     Dosage: 125 MG/M2
     Dates: start: 20080725
  4. BEVACIZUMAB [Suspect]
     Indication: GLIOBLASTOMA MULTIFORME
     Dosage: 10 MG/KG
     Dates: start: 20080711
  5. BEVACIZUMAB [Suspect]
     Indication: GLIOBLASTOMA MULTIFORME
     Dosage: 10 MG/KG
     Dates: start: 20080725
  6. DEXAMETHASONE [Concomitant]
  7. DILANTIN [Concomitant]
  8. LEXAPRO [Concomitant]
  9. MULTI-VITAMIN [Concomitant]
  10. FISH OIL [Concomitant]
  11. PROBIONIX [Concomitant]

REACTIONS (1)
  - GRAND MAL CONVULSION [None]
